FAERS Safety Report 4579303-6 (Version None)
Quarter: 2005Q1

REPORT INFORMATION
  Report Type: 
  Country: None (occurrence: None)
  Receive Date: 20050209
  Receipt Date: 20050125
  Transmission Date: 20050727
  Serious: Yes (Hospitalization)
  Sender: FDA-Public Use
  Company Number: USA040978971

PATIENT
  Age: 79 Year
  Sex: Female
  Weight: 63 kg

DRUGS (10)
  1. CYMBALTA [Suspect]
     Indication: DEPRESSION
     Dosage: 30 MG DAY
     Dates: start: 20040916, end: 20040916
  2. AXERT [Concomitant]
  3. PREMARIN [Concomitant]
  4. AXID [Concomitant]
  5. LIDODERM (LIDOCAINE) [Concomitant]
  6. TEGASEROD [Concomitant]
  7. TROLAMINE [Concomitant]
  8. HYDROCHLOROTHIAZIDE [Concomitant]
  9. XANAX (ALPRAZOLAM DUM) [Concomitant]
  10. NEURONTIN (GABAPENTIN PFIZER) [Concomitant]

REACTIONS (10)
  - ASTHENIA [None]
  - BLOOD POTASSIUM DECREASED [None]
  - CHILLS [None]
  - HAEMATEMESIS [None]
  - HYPERHIDROSIS [None]
  - MALLORY-WEISS SYNDROME [None]
  - NAUSEA [None]
  - PALPITATIONS [None]
  - PYREXIA [None]
  - VOMITING [None]
